FAERS Safety Report 10162183 (Version 1)
Quarter: 2014Q2

REPORT INFORMATION
  Report Type: Spontaneous
  Country: US (occurrence: US)
  Receive Date: 20140509
  Receipt Date: 20140509
  Transmission Date: 20141212
  Serious: Yes (Hospitalization)
  Sender: FDA-Public Use
  Company Number: US-ASTRAZENECA-2014SE30464

PATIENT
  Age: 35 Year
  Sex: Male

DRUGS (1)
  1. BRILINTA [Suspect]
     Indication: ACUTE MYOCARDIAL INFARCTION
     Dosage: 90 MG-LOADING BID
     Route: 048
     Dates: end: 201404

REACTIONS (3)
  - Acute myocardial infarction [Recovering/Resolving]
  - Cardiac arrest [Recovering/Resolving]
  - Drug dose omission [Unknown]
